FAERS Safety Report 5127022-X (Version None)
Quarter: 2006Q4

REPORT INFORMATION
  Report Type: 
  Country: None (occurrence: None)
  Receive Date: 20061013
  Receipt Date: 20061010
  Transmission Date: 20070319
  Serious: Yes (Other)
  Sender: FDA-Public Use
  Company Number: GB-GLAXOSMITHKLINE-B0441524A

PATIENT
  Sex: Female

DRUGS (2)
  1. SEROXAT [Suspect]
     Indication: DEPRESSION
     Route: 065
     Dates: start: 19960101
  2. ANTIDEPRESSANTS [Concomitant]

REACTIONS (7)
  - ASTHENIA [None]
  - DISABILITY [None]
  - FEELING ABNORMAL [None]
  - GLUTATHIONE DECREASED [None]
  - LIVER DISORDER [None]
  - STRESS [None]
  - SUICIDAL IDEATION [None]
